FAERS Safety Report 11591797 (Version 2)
Quarter: 2015Q4

REPORT INFORMATION
  Report Type: Spontaneous
  Country: BR (occurrence: BR)
  Receive Date: 20151005
  Receipt Date: 20151007
  Transmission Date: 20160304
  Serious: Yes (Disabling, Other)
  Sender: FDA-Public Use
  Company Number: BR-UCBSA-2015017090

PATIENT
  Sex: Female

DRUGS (1)
  1. CIMZIA [Suspect]
     Active Substance: CERTOLIZUMAB PEGOL
     Indication: PRODUCT USED FOR UNKNOWN INDICATION
     Dosage: 200 MG, UNK
     Route: 058
     Dates: start: 201505, end: 2015

REACTIONS (4)
  - Pain [Unknown]
  - Nausea [Unknown]
  - Musculoskeletal stiffness [Not Recovered/Not Resolved]
  - Paralytic disability [Not Recovered/Not Resolved]

NARRATIVE: CASE EVENT DATE: 20150522
